FAERS Safety Report 4345140-0 (Version None)
Quarter: 2004Q2

REPORT INFORMATION
  Report Type: 
  Country: None (occurrence: None)
  Receive Date: 20040423
  Receipt Date: 20020502
  Transmission Date: 20050107
  Serious: Yes (Life-Threatening)
  Sender: FDA-Public Use
  Company Number: JP-MERCK-0205USA01090

PATIENT
  Age: 65 Year
  Sex: Male
  Weight: 65 kg

DRUGS (3)
  1. DIPYRIDAMOLE [Concomitant]
     Indication: CORONARY ARTERY ATHEROSCLEROSIS
     Route: 065
  2. ETHYL EICOSAPENTAENOATE [Concomitant]
     Indication: HYPERLIPIDAEMIA
     Route: 065
     Dates: start: 20010616
  3. COZAAR [Suspect]
     Indication: HYPERTENSION
     Route: 048
     Dates: start: 19991021, end: 20020418

REACTIONS (2)
  - BLOOD CREATINE PHOSPHOKINASE INCREASED [None]
  - MYOGLOBIN BLOOD INCREASED [None]
